FAERS Safety Report 5345272-4 (Version None)
Quarter: 2007Q2

REPORT INFORMATION
  Report Type: 
  Country: None (occurrence: None)
  Receive Date: 20070601
  Receipt Date: 20070515
  Transmission Date: 20071010
  Serious: Yes (Death, Life-Threatening, Hospitalization, Other)
  Sender: FDA-Public Use
  Company Number: TRP_00946_2007

PATIENT
  Age: 41 Year
  Sex: Female
  Weight: 75 kg

DRUGS (2)
  1. AMPHOTERICIN B [Suspect]
     Indication: MENINGITIS CRYPTOCOCCAL
     Dosage: (5 MG/KG/DAY INTRAVENOUS DRIP)
     Route: 041
  2. AMPHOTERICIN B [Suspect]
     Indication: MENINGITIS CRYPTOCOCCAL
     Dosage: 5 MG/KG/DAY ONCE INTRAVENOUS DRIP
     Route: 041

REACTIONS (33)
  - ADRENAL CORTEX NECROSIS [None]
  - BLOOD BICARBONATE DECREASED [None]
  - BLOOD CALCIUM DECREASED [None]
  - BLOOD PHOSPHORUS INCREASED [None]
  - BLOOD SODIUM DECREASED [None]
  - CARDIAC ARREST [None]
  - CARDIOTOXICITY [None]
  - CHEST PAIN [None]
  - CONTINUOUS HAEMODIAFILTRATION [None]
  - CORONARY ARTERY ANEURYSM [None]
  - DRUG ADMINISTRATION ERROR [None]
  - ELECTROCARDIOGRAM QT PROLONGED [None]
  - ELECTROCARDIOGRAM ST SEGMENT DEPRESSION [None]
  - ELECTROCARDIOGRAM T WAVE INVERSION [None]
  - HAEMATOCRIT DECREASED [None]
  - HAEMOGLOBIN DECREASED [None]
  - HAEMOLYSIS [None]
  - HEPATIC NECROSIS [None]
  - HYPERKALAEMIA [None]
  - HYPOAESTHESIA ORAL [None]
  - HYPOTENSION [None]
  - METABOLIC ACIDOSIS [None]
  - MYALGIA [None]
  - MYOCARDIAL ISCHAEMIA [None]
  - NECROSIS [None]
  - OVERDOSE [None]
  - PANCREATIC NECROSIS [None]
  - PARAESTHESIA [None]
  - PLATELET COUNT DECREASED [None]
  - RENAL FAILURE ACUTE [None]
  - RENAL TUBULAR NECROSIS [None]
  - TACHYCARDIA [None]
  - VENTRICULAR TACHYCARDIA [None]
